FAERS Safety Report 7488900-X (Version None)
Quarter: 2011Q2

REPORT INFORMATION
  Report Type: 
  Country: None (occurrence: None)
  Receive Date: 20110518
  Receipt Date: 20110506
  Transmission Date: 20111010
  Serious: Yes (Hospitalization, Other)
  Sender: FDA-Public Use
  Company Number: GB-UCBSA-8026669

PATIENT
  Sex: Female

DRUGS (8)
  1. AMITRIPTYLINE HCL [Concomitant]
     Dosage: AT NIGHT
  2. CIMZIA [Suspect]
     Indication: RHEUMATOID ARTHRITIS
     Dosage: STUDY: CDP870-14; NBR OF DOSES:6
     Route: 058
     Dates: start: 20030512, end: 20030929
  3. CIMZIA [Suspect]
     Dosage: NBR OF DOSES::51
     Route: 058
     Dates: start: 20031027, end: 20070904
  4. CIMZIA [Suspect]
     Route: 058
     Dates: start: 20071001
  5. WARFARIN SODIUM [Concomitant]
     Indication: DEEP VEIN THROMBOSIS
     Dates: start: 19770101
  6. METHOTREXATE [Concomitant]
     Indication: RHEUMATOID ARTHRITIS
     Route: 048
  7. CODEINE PHOSPHATE [Concomitant]
     Dosage: 30-60 MG AS NEEDED
  8. CO-AMILOFRUSE [Concomitant]
     Dosage: 5/40

REACTIONS (2)
  - PNEUMONIA [None]
  - CELLULITIS [None]
